FAERS Safety Report 12157099 (Version 3)
Quarter: 2016Q1

REPORT INFORMATION
  Report Type: Spontaneous
  Country: CA (occurrence: CA)
  Receive Date: 20160307
  Receipt Date: 20160321
  Transmission Date: 20160526
  Serious: Yes (Hospitalization, Other)
  Sender: FDA-Public Use
  Company Number: CA-ROCHE-1721423

PATIENT
  Age: 51 Year
  Sex: Female

DRUGS (5)
  1. ZENHALE [Concomitant]
     Active Substance: FORMOTEROL FUMARATE\MOMETASONE FUROATE
  2. SINGULAIR [Concomitant]
     Active Substance: MONTELUKAST SODIUM
  3. SPIRIVA [Concomitant]
     Active Substance: TIOTROPIUM BROMIDE MONOHYDRATE
  4. XOLAIR [Suspect]
     Active Substance: OMALIZUMAB
     Indication: ASTHMA
     Route: 058
     Dates: start: 20160225, end: 20160225
  5. ALVESCO [Concomitant]
     Active Substance: CICLESONIDE

REACTIONS (8)
  - Pain [Unknown]
  - Hypersensitivity [Unknown]
  - Cerebral disorder [Unknown]
  - Pulmonary embolism [Unknown]
  - Feeling abnormal [Unknown]
  - Myocardial infarction [Unknown]
  - Anaphylactic shock [Unknown]
  - Gastritis [Unknown]

NARRATIVE: CASE EVENT DATE: 20160225
